FAERS Safety Report 4661629-9 (Version None)
Quarter: 2005Q2

REPORT INFORMATION
  Report Type: 
  Country: None (occurrence: None)
  Receive Date: 20050513
  Receipt Date: 20050413
  Transmission Date: 20051028
  Serious: Yes (Hospitalization, Other)
  Sender: FDA-Public Use
  Company Number: 200513073US

PATIENT
  Sex: Male
  Weight: 77.3 kg

DRUGS (5)
  1. LOVENOX [Suspect]
     Indication: ATRIAL FIBRILLATION
     Dates: start: 20050301
  2. LOVENOX [Suspect]
     Indication: THROMBOSIS
     Dates: start: 20050301
  3. METOPROLOL TARTRATE [Concomitant]
     Indication: ATRIAL FIBRILLATION
     Dates: start: 20050301
  4. DIGOXIN [Concomitant]
     Indication: ATRIAL FIBRILLATION
     Dates: start: 20050301
  5. UNKNOWN DRUG [Concomitant]
     Indication: PANCREATIC INSUFFICIENCY

REACTIONS (3)
  - BLOOD GLUCOSE INCREASED [None]
  - DIABETES MELLITUS [None]
  - HYPERGLYCAEMIA [None]
